FAERS Safety Report 5212964-7 (Version None)
Quarter: 2007Q1

REPORT INFORMATION
  Report Type: 
  Country: None (occurrence: None)
  Receive Date: 20070117
  Receipt Date: 20070103
  Transmission Date: 20070707
  Serious: Yes (Hospitalization)
  Sender: FDA-Public Use
  Company Number: 2006BI013452

PATIENT
  Age: 67 Year
  Sex: Female

DRUGS (1)
  1. NATALIZUMAB [Suspect]
     Indication: MULTIPLE SCLEROSIS
     Dosage: 300 MG;QM;IV
     Route: 042
     Dates: start: 20060913

REACTIONS (4)
  - FULL BLOOD COUNT DECREASED [None]
  - PETIT MAL EPILEPSY [None]
  - RECTAL HAEMORRHAGE [None]
  - URINARY BLADDER HAEMORRHAGE [None]
